FAERS Safety Report 7378549-1 (Version None)
Quarter: 2011Q1

REPORT INFORMATION
  Report Type: 
  Country: None (occurrence: None)
  Receive Date: 20110328
  Receipt Date: 20110315
  Transmission Date: 20110831
  Serious: Yes (Hospitalization, Other)
  Sender: FDA-Public Use
  Company Number: MX-TYCO HEALTHCARE/MALLINCKRODT-T201100602

PATIENT
  Age: 15 Year
  Sex: Male

DRUGS (3)
  1. NSAID'S [Suspect]
     Dosage: UNK
  2. TRAMADOL [Suspect]
     Dosage: 500 MG, SINGLE
  3. TRAMADOL [Suspect]
     Dosage: 25 MG, SINGLE
     Route: 048

REACTIONS (4)
  - GRAND MAL CONVULSION [None]
  - HALLUCINATION, AUDITORY [None]
  - PSYCHOTIC DISORDER [None]
  - OVERDOSE [None]
